FAERS Safety Report 6633225-5 (Version None)
Quarter: 2010Q1

REPORT INFORMATION
  Report Type: 
  Country: None (occurrence: None)
  Receive Date: 20100312
  Receipt Date: 20100310
  Transmission Date: 20100710
  Serious: Yes (Death, Life-Threatening, Hospitalization)
  Sender: FDA-Public Use
  Company Number: PHHY2010JP07804

PATIENT
  Age: 66 Year
  Sex: Female

DRUGS (5)
  1. SANDIMMUNE [Suspect]
     Indication: HEPATITIS B
     Dosage: 50 MG DAILY
     Route: 042
     Dates: start: 20081001, end: 20081010
  2. METHYLPREDNISOLONE [Concomitant]
     Indication: HEPATITIS B
     Dosage: 1000 ML/DAY
     Route: 042
     Dates: start: 20080925
  3. METHYLPREDNISOLONE [Concomitant]
     Dosage: 125 MG
     Route: 042
     Dates: start: 20081003
  4. PREDNISOLONE [Concomitant]
     Dosage: 80 MG
     Route: 048
     Dates: start: 20081004
  5. PREDNISOLONE [Concomitant]
     Dosage: 10 MG
     Route: 048
     Dates: start: 20081015

REACTIONS (37)
  - ABSCESS DRAINAGE [None]
  - ALTERED STATE OF CONSCIOUSNESS [None]
  - ASPERGILLOSIS [None]
  - BRONCHOPULMONARY ASPERGILLOSIS [None]
  - CEREBRAL HAEMORRHAGE [None]
  - COMA [None]
  - CONTINUOUS HAEMODIAFILTRATION [None]
  - CONVULSION [None]
  - DEPRESSED LEVEL OF CONSCIOUSNESS [None]
  - DISSEMINATED INTRAVASCULAR COAGULATION [None]
  - EMPHYSEMA [None]
  - ENDOTRACHEAL INTUBATION [None]
  - EUPHORIC MOOD [None]
  - EXTUBATION [None]
  - HAEMORRHAGIC CEREBRAL INFARCTION [None]
  - HEPATIC ENCEPHALOPATHY [None]
  - INTRAVENTRICULAR HAEMORRHAGE [None]
  - LUNG DISORDER [None]
  - LUNG INFILTRATION [None]
  - MECHANICAL VENTILATION [None]
  - PLASMAPHERESIS [None]
  - PNEUMOCYSTIS JIROVECI PNEUMONIA [None]
  - PNEUMOTHORAX [None]
  - PSEUDOMONAS INFECTION [None]
  - PULMONARY EMBOLISM [None]
  - PYREXIA [None]
  - RENAL CANCER [None]
  - RENAL MASS [None]
  - RESPIRATORY DISORDER [None]
  - RETROPERITONEAL ABSCESS [None]
  - SKIN NODULE [None]
  - STAPHYLOCOCCAL SEPSIS [None]
  - SUBARACHNOID HAEMORRHAGE [None]
  - SUPPORTIVE CARE [None]
  - SYSTEMIC INFLAMMATORY RESPONSE SYNDROME [None]
  - THORACIC CAVITY DRAINAGE [None]
  - UNRESPONSIVE TO STIMULI [None]
